FAERS Safety Report 21874534 (Version 1)
Quarter: 2023Q1

REPORT INFORMATION
  Report Type: Spontaneous
  Country: US (occurrence: None)
  Receive Date: 20230117
  Receipt Date: 20230117
  Transmission Date: 20230418
  Serious: No
  Sender: FDA-Public Use
  Company Number: 2023A002976

PATIENT
  Age: 69 Year
  Sex: Female
  Weight: 60.8 kg

DRUGS (1)
  1. BYDUREON BCISE [Suspect]
     Active Substance: EXENATIDE
     Indication: Diabetes mellitus
     Route: 058
     Dates: start: 20221216

REACTIONS (3)
  - Injection site mass [Unknown]
  - Injection site pruritus [Unknown]
  - Pain [Unknown]

NARRATIVE: CASE EVENT DATE: 20211230
